FAERS Safety Report 19645571 (Version 1)
Quarter: 2021Q3

REPORT INFORMATION
  Report Type: Report from Study
  Country: None (occurrence: CO)
  Receive Date: 20210802
  Receipt Date: 20210802
  Transmission Date: 20211014
  Serious: Yes (Death)
  Sender: FDA-Public Use
  Company Number: CO-ABBVIE-21K-036-4020665-00

PATIENT
  Sex: Male

DRUGS (1)
  1. IMBRUVICA [Suspect]
     Active Substance: IBRUTINIB
     Indication: CHRONIC LYMPHOCYTIC LEUKAEMIA
     Route: 048
     Dates: start: 20190724, end: 20210626

REACTIONS (1)
  - Death [Fatal]
